FAERS Safety Report 9968046 (Version 1)
Quarter: 2014Q1

REPORT INFORMATION
  Report Type: Report from Study
  Country: US (occurrence: US)
  Receive Date: 20140306
  Receipt Date: 20140306
  Transmission Date: 20141002
  Serious: No
  Sender: FDA-Public Use
  Company Number: US-ABBVIE-13P-163-1142395-00

PATIENT
  Age: 24 Year
  Sex: Male

DRUGS (7)
  1. HUMIRA [Suspect]
     Indication: COLITIS ULCERATIVE
     Dosage: ABOUT ONE MONTH
     Dates: start: 20111021
  2. HUMIRA [Suspect]
  3. ASACOL HD [Concomitant]
     Indication: PRODUCT USED FOR UNKNOWN INDICATION
  4. CANASA [Concomitant]
     Indication: PRODUCT USED FOR UNKNOWN INDICATION
  5. SIMVASTATIN [Concomitant]
     Indication: BLOOD CHOLESTEROL INCREASED
     Dosage: AT BEDTIME
  6. LEXAPRO [Concomitant]
     Indication: ANXIETY
     Dates: end: 201308
  7. HYOSCYAMINE [Concomitant]
     Indication: PRODUCT USED FOR UNKNOWN INDICATION
     Dosage: EVERY FOUR HOURS.

REACTIONS (9)
  - Pyrexia [Not Recovered/Not Resolved]
  - Haematochezia [Not Recovered/Not Resolved]
  - Painful defaecation [Not Recovered/Not Resolved]
  - Frequent bowel movements [Not Recovered/Not Resolved]
  - Iron deficiency [Unknown]
  - Diarrhoea [Not Recovered/Not Resolved]
  - Dizziness [Unknown]
  - Blood cholesterol increased [Unknown]
  - Anxiety [Unknown]
